FAERS Safety Report 21257300 (Version 2)
Quarter: 2022Q3

REPORT INFORMATION
  Report Type: Spontaneous
  Country: None (occurrence: US)
  Receive Date: 20220826
  Receipt Date: 20220826
  Transmission Date: 20221026
  Serious: No
  Sender: FDA-Public Use
  Company Number: US-ITALFARMACO SPA-2132250

PATIENT
  Age: 58 Year
  Sex: Male

DRUGS (4)
  1. TIGLUTIK [Suspect]
     Active Substance: RILUZOLE
     Indication: Amyotrophic lateral sclerosis
     Route: 048
     Dates: start: 20220216, end: 20220601
  2. ATROPINE [Concomitant]
     Active Substance: ATROPINE
  3. BACLOFEN [Concomitant]
     Active Substance: BACLOFEN
  4. MUCINEX [Concomitant]
     Active Substance: GUAIFENESIN

REACTIONS (1)
  - Abdominal discomfort [Unknown]

NARRATIVE: CASE EVENT DATE: 20220407
